FAERS Safety Report 5016444-3 (Version None)
Quarter: 2006Q2

REPORT INFORMATION
  Report Type: 
  Country: None (occurrence: None)
  Receive Date: 20060531
  Receipt Date: 20060531
  Transmission Date: 20061013
  Serious: No
  Sender: FDA-Public Use
  Company Number: None

PATIENT
  Age: 54 Year
  Sex: Male
  Weight: 90.7194 kg

DRUGS (1)
  1. LEVAQUIN [Suspect]
     Dosage: 50 TO 75 MGS? 1 OR 2 DOSE DAILY PO
     Route: 048
     Dates: start: 20051210, end: 20051216

REACTIONS (26)
  - ANOREXIA [None]
  - ANXIETY [None]
  - ASTHENIA [None]
  - BALANCE DISORDER [None]
  - CROHN'S DISEASE [None]
  - CRYING [None]
  - DEPRESSION [None]
  - DIFFICULTY IN WALKING [None]
  - DYSPNOEA [None]
  - DYSURIA [None]
  - FEAR [None]
  - GASTROINTESTINAL PAIN [None]
  - HEART RATE DECREASED [None]
  - INSOMNIA [None]
  - NECK PAIN [None]
  - NIGHTMARE [None]
  - PAIN [None]
  - PAIN IN EXTREMITY [None]
  - PANIC ATTACK [None]
  - PRURITUS [None]
  - SEXUAL DYSFUNCTION [None]
  - SHOULDER PAIN [None]
  - SYNCOPE VASOVAGAL [None]
  - TEMPERATURE INTOLERANCE [None]
  - TREMOR [None]
  - WEIGHT DECREASED [None]
